FAERS Safety Report 22255141 (Version 1)
Quarter: 2023Q2

REPORT INFORMATION
  Report Type: Spontaneous
  Country: US (occurrence: None)
  Receive Date: 20230424
  Receipt Date: 20230424
  Transmission Date: 20230722
  Serious: Yes (Hospitalization)
  Sender: FDA-Public Use
  Company Number: None

PATIENT
  Sex: Male

DRUGS (1)
  1. TACROLIMUS [Suspect]
     Active Substance: TACROLIMUS
     Indication: Renal transplant
     Dosage: 2MG TWICE DAILY ORAL?
     Route: 048
     Dates: start: 20170330

REACTIONS (4)
  - Oesophageal ulcer [None]
  - Diverticulitis [None]
  - Chills [None]
  - Therapy change [None]
